FAERS Safety Report 7534599-3 (Version None)
Quarter: 2011Q2

REPORT INFORMATION
  Report Type: 
  Country: None (occurrence: None)
  Receive Date: 20110609
  Receipt Date: 20100322
  Transmission Date: 20111010
  Serious: Yes (Death, Hospitalization)
  Sender: FDA-Public Use
  Company Number: PHHY2010DE18706

PATIENT
  Sex: Female

DRUGS (7)
  1. ENTACAPONE [Suspect]
     Indication: PARKINSON'S DISEASE
     Dosage: 200 MG, QD
     Dates: start: 20081118, end: 20081119
  2. ENTACAPONE [Suspect]
     Dosage: 200 MG, TID
     Dates: start: 20081120, end: 20081130
  3. ENTACAPONE [Suspect]
     Dosage: 200 MG, QID
     Dates: start: 20081201
  4. LEVOPAR                                 /GFR/ [Concomitant]
     Indication: PARKINSON'S DISEASE
     Dosage: 3 DAILY
     Dates: start: 20081201
  5. LEVODOPA [Suspect]
     Dosage: 50 MG, QD
     Dates: start: 20081201
  6. MADOPAR [Concomitant]
     Dosage: 1 DF, UNK
     Dates: start: 20040622, end: 20041104
  7. LEVODOPA [Suspect]
     Dosage: 100 MG, TID

REACTIONS (2)
  - GENERAL PHYSICAL HEALTH DETERIORATION [None]
  - GASTROENTERITIS [None]
